FAERS Safety Report 24861597 (Version 1)
Quarter: 2025Q1

REPORT INFORMATION
  Report Type: Spontaneous
  Country: US (occurrence: US)
  Receive Date: 20250120
  Receipt Date: 20250120
  Transmission Date: 20250408
  Serious: No
  Sender: GILEAD
  Company Number: US-GILEAD-2025-0700133

PATIENT
  Sex: Male

DRUGS (1)
  1. BIKTARVY [Suspect]
     Active Substance: BICTEGRAVIR SODIUM\EMTRICITABINE\TENOFOVIR ALAFENAMIDE FUMARATE
     Indication: Product used for unknown indication
     Route: 065
     Dates: start: 2015

REACTIONS (3)
  - CD4 lymphocytes increased [Unknown]
  - CD8 lymphocytes increased [Unknown]
  - CD4/CD8 ratio decreased [Unknown]

NARRATIVE: CASE EVENT DATE: 20250107
